FAERS Safety Report 8320455-X (Version None)
Quarter: 2012Q2

REPORT INFORMATION
  Report Type: 
  Country: None (occurrence: None)
  Receive Date: 20120426
  Receipt Date: 20120426
  Transmission Date: 20120825
  Serious: Yes (Life-Threatening, Other)
  Sender: FDA-Public Use
  Company Number: None

PATIENT
  Sex: Male
  Weight: 124.7392 kg

DRUGS (1)
  1. COPAXONE [Suspect]
     Indication: MULTIPLE SCLEROSIS
     Dosage: 20MG/1 ML ONCE A DAY SUBCUTANEOUS INJECTION
     Route: 058
     Dates: start: 20071001, end: 20120401

REACTIONS (4)
  - NASOPHARYNGITIS [None]
  - INFECTION [None]
  - MALAISE [None]
  - THYROID CANCER [None]
